FAERS Safety Report 9360424 (Version 1)
Quarter: 2013Q2

REPORT INFORMATION
  Report Type: Spontaneous
  Country: US (occurrence: None)
  Receive Date: 20130620
  Receipt Date: 20130620
  Transmission Date: 20140414
  Serious: Yes (Hospitalization)
  Sender: FDA-Public Use
  Company Number: None

PATIENT
  Age: 63 Year
  Sex: Male
  Weight: 107 kg

DRUGS (7)
  1. JANUVIA 100MG [Suspect]
     Indication: DIABETES MELLITUS
     Route: 048
  2. PRAVACHOL [Suspect]
     Indication: HYPERLIPIDAEMIA
     Route: 048
  3. ASPIRIN [Concomitant]
  4. GLYBURIDE [Concomitant]
  5. CATAPRES [Concomitant]
  6. DIOVAN [Concomitant]
  7. METFORMIN [Concomitant]

REACTIONS (1)
  - Pancreatitis [None]
